FAERS Safety Report 9622264 (Version 1)
Quarter: 2013Q4

REPORT INFORMATION
  Report Type: Report from Study
  Country: US (occurrence: US)
  Receive Date: 20131015
  Receipt Date: 20131015
  Transmission Date: 20140711
  Serious: Yes (Hospitalization, Other)
  Sender: FDA-Public Use
  Company Number: US-TEVA-437370USA

PATIENT
  Age: 44 Year
  Sex: Female

DRUGS (2)
  1. COPAXONE [Suspect]
     Indication: MULTIPLE SCLEROSIS
     Dates: start: 20130430, end: 20130913
  2. SOLU MEDROL [Suspect]
     Route: 042
     Dates: start: 20130912

REACTIONS (6)
  - Hot flush [Unknown]
  - Chest discomfort [Unknown]
  - Palpitations [Unknown]
  - Pruritus [Unknown]
  - Swelling [Unknown]
  - Drug hypersensitivity [Unknown]
